FAERS Safety Report 25158785 (Version 3)
Quarter: 2025Q3

REPORT INFORMATION
  Report Type: Spontaneous
  Country: EU (occurrence: EU)
  Receive Date: 20250404
  Receipt Date: 20250802
  Transmission Date: 20251021
  Serious: Yes (Hospitalization, Other)
  Sender: ALEXION PHARMACEUTICALS
  Company Number: EU-AstraZeneca-CH-00840621AM

PATIENT
  Age: 83 Year
  Sex: Female

DRUGS (1)
  1. LYNPARZA [Suspect]
     Active Substance: OLAPARIB
     Indication: Peritoneal cancer index
     Dosage: 150 MILLIGRAM, QID

REACTIONS (5)
  - Off label use [Unknown]
  - Oesophageal stenosis [Unknown]
  - Hernia [Unknown]
  - Dysphagia [Unknown]
  - Pelvic fracture [Unknown]
